FAERS Safety Report 15942730 (Version 2)
Quarter: 2019Q2

REPORT INFORMATION
  Report Type: Spontaneous
  Country: US (occurrence: US)
  Receive Date: 20190209
  Receipt Date: 20190422
  Transmission Date: 20190711
  Serious: Yes (Other)
  Sender: FDA-Public Use
  Company Number: US-ASTRAZENECA-2018SF26028

PATIENT
  Age: 25758 Day
  Sex: Female
  Weight: 69.7 kg

DRUGS (30)
  1. GABAPENTIN. [Concomitant]
     Active Substance: GABAPENTIN
     Route: 048
  2. LEVETIRACETAM. [Concomitant]
     Active Substance: LEVETIRACETAM
  3. LANTUS [Concomitant]
     Active Substance: INSULIN GLARGINE
  4. TRIAZOLAM. [Concomitant]
     Active Substance: TRIAZOLAM
  5. ZOSTAVAX [Concomitant]
     Active Substance: VARICELLA-ZOSTER VIRUS STRAIN OKA/MERCK LIVE ANTIGEN
  6. NEXIUM [Suspect]
     Active Substance: ESOMEPRAZOLE MAGNESIUM
     Route: 048
     Dates: start: 1995, end: 2011
  7. NOVOLOG [Concomitant]
     Active Substance: INSULIN ASPART
  8. CICLOPIROX. [Concomitant]
     Active Substance: CICLOPIROX
  9. MAGNESIUM [Concomitant]
     Active Substance: MAGNESIUM
  10. PREMARIN [Concomitant]
     Active Substance: ESTROGENS, CONJUGATED
  11. FUROSEMIDE. [Concomitant]
     Active Substance: FUROSEMIDE
  12. LEVETIRACETAM. [Concomitant]
     Active Substance: LEVETIRACETAM
  13. SPIRONOLACTONE. [Concomitant]
     Active Substance: SPIRONOLACTONE
     Dates: start: 20090623
  14. PROPRANOLOL HYDROCHLORIDE. [Concomitant]
     Active Substance: PROPRANOLOL HYDROCHLORIDE
     Dates: start: 20091021
  15. SPIRONOLACTONE. [Concomitant]
     Active Substance: SPIRONOLACTONE
  16. LIDODERM [Concomitant]
     Active Substance: LIDOCAINE
  17. PRILOSEC [Suspect]
     Active Substance: OMEPRAZOLE MAGNESIUM
     Route: 048
     Dates: start: 1995, end: 2011
  18. FUROSEMIDE. [Concomitant]
     Active Substance: FUROSEMIDE
     Dates: start: 20090623
  19. TRIAZOLAM. [Concomitant]
     Active Substance: TRIAZOLAM
     Dates: start: 20091127
  20. KLOR-CON [Concomitant]
     Active Substance: POTASSIUM CHLORIDE
     Dates: start: 20090623
  21. LACTULOSE. [Concomitant]
     Active Substance: LACTULOSE
  22. ACETAMINOPHEN. [Concomitant]
     Active Substance: ACETAMINOPHEN
  23. SUCRALFATE. [Concomitant]
     Active Substance: SUCRALFATE
  24. CIPROFLOXACIN. [Concomitant]
     Active Substance: CIPROFLOXACIN
  25. OXYCODONE [Concomitant]
     Active Substance: OXYCODONE
     Dosage: 10.0MG EVERY 4 - 6 HOURS
     Route: 048
  26. CEFUROXIME. [Concomitant]
     Active Substance: CEFUROXIME
  27. PROPRANOLOL [Concomitant]
     Active Substance: PROPRANOLOL HYDROCHLORIDE
  28. NEXIUM [Suspect]
     Active Substance: ESOMEPRAZOLE MAGNESIUM
     Route: 048
     Dates: start: 20090623
  29. PROPRANOLOL [Concomitant]
     Active Substance: PROPRANOLOL HYDROCHLORIDE
  30. HYDROCODONE [Concomitant]
     Active Substance: HYDROCODONE

REACTIONS (2)
  - Chronic kidney disease [Unknown]
  - Acute kidney injury [Unknown]

NARRATIVE: CASE EVENT DATE: 20150420
